FAERS Safety Report 18565890 (Version 1)
Quarter: 2020Q4

REPORT INFORMATION
  Report Type: Spontaneous
  Country: US (occurrence: US)
  Receive Date: 20201201
  Receipt Date: 20201201
  Transmission Date: 20210114
  Serious: Yes (Other)
  Sender: FDA-Public Use
  Company Number: US-TEVA-2020-US-1851477

PATIENT
  Age: 68 Year
  Sex: Male

DRUGS (1)
  1. PRAVASTATIN SODIUM. [Suspect]
     Active Substance: PRAVASTATIN SODIUM
     Route: 065
     Dates: start: 202008

REACTIONS (3)
  - Diarrhoea [Unknown]
  - Diabetes mellitus [Unknown]
  - Coeliac disease [Unknown]

NARRATIVE: CASE EVENT DATE: 2020
